FAERS Safety Report 4403690-2 (Version None)
Quarter: 2004Q3

REPORT INFORMATION
  Report Type: 
  Country: None (occurrence: None)
  Receive Date: 20040721
  Receipt Date: 20040714
  Transmission Date: 20050211
  Serious: Yes (Other)
  Sender: FDA-Public Use
  Company Number: PHEH2004US07601

PATIENT
  Age: 83 Year
  Sex: Female
  Weight: 46 kg

DRUGS (9)
  1. MIACALCIN [Suspect]
     Indication: OSTEOPOROSIS
     Dosage: 200 IU, QD
     Route: 045
     Dates: start: 20040101
  2. ASPIRIN [Concomitant]
  3. SENNA [Concomitant]
  4. CITRACAL + D [Concomitant]
  5. VITAMIN CAP [Concomitant]
  6. LISINOPRIL [Concomitant]
  7. PRILOSEC [Concomitant]
  8. PAXIL [Concomitant]
  9. ATROVENT [Concomitant]

REACTIONS (1)
  - WEIGHT DECREASED [None]
